FAERS Safety Report 17284257 (Version 1)
Quarter: 2020Q1

REPORT INFORMATION
  Report Type: Spontaneous
  Country: SE (occurrence: SE)
  Receive Date: 20200117
  Receipt Date: 20200117
  Transmission Date: 20200409
  Serious: Yes (Other)
  Sender: FDA-Public Use
  Company Number: SE-BAYER-2019-216759

PATIENT
  Sex: Female

DRUGS (1)
  1. LEVONORGESTREL IUS [UNKNOWN] [Suspect]
     Active Substance: LEVONORGESTREL
     Route: 015

REACTIONS (7)
  - Caesarean section [None]
  - Fatigue [None]
  - Breast discomfort [None]
  - Uterine perforation [None]
  - Feeling abnormal [None]
  - Drug ineffective [None]
  - Pregnancy with contraceptive device [None]
